FAERS Safety Report 14893030 (Version 1)
Quarter: 2018Q2

REPORT INFORMATION
  Report Type: Spontaneous
  Country: US (occurrence: US)
  Receive Date: 20180514
  Receipt Date: 20180514
  Transmission Date: 20180711
  Serious: Yes (Life-Threatening, Hospitalization, Other)
  Sender: FDA-Public Use
  Company Number: US-SA-2016SA221717

PATIENT
  Age: 44 Year
  Sex: Male

DRUGS (5)
  1. OXALIPLATIN. [Suspect]
     Active Substance: OXALIPLATIN
     Indication: COLORECTAL ADENOCARCINOMA
     Dosage: FORM: INFUSION
     Route: 042
  2. OXALIPLATIN. [Suspect]
     Active Substance: OXALIPLATIN
     Indication: COLORECTAL ADENOCARCINOMA
     Dosage: FORM: INFUSION
     Route: 042
     Dates: start: 201606
  3. 5-FU [Suspect]
     Active Substance: FLUOROURACIL
     Indication: COLORECTAL ADENOCARCINOMA
     Dosage: FORM: INFUSION
     Route: 042
     Dates: start: 201506
  4. OXALIPLATIN. [Suspect]
     Active Substance: OXALIPLATIN
     Indication: COLORECTAL ADENOCARCINOMA
     Dosage: FORM: INFUSION
     Route: 042
  5. OXALIPLATIN. [Suspect]
     Active Substance: OXALIPLATIN
     Indication: COLORECTAL ADENOCARCINOMA
     Dosage: FORM: INFUSION
     Route: 042

REACTIONS (5)
  - Platelet count decreased [Recovering/Resolving]
  - Neutropenia [Unknown]
  - Thrombocytopenia [Recovering/Resolving]
  - Gastrointestinal haemorrhage [Recovered/Resolved]
  - Hyperbilirubinaemia [Unknown]
